FAERS Safety Report 13191835 (Version 1)
Quarter: 2017Q1

REPORT INFORMATION
  Report Type: Spontaneous
  Country: US (occurrence: US)
  Receive Date: 20170207
  Receipt Date: 20170207
  Transmission Date: 20170428
  Serious: Yes (Other)
  Sender: FDA-Public Use
  Company Number: US-CONCORDIA PHARMACEUTICALS INC.-GSH201702-000856

PATIENT
  Sex: Female

DRUGS (2)
  1. DIGOXIN. [Suspect]
     Active Substance: DIGOXIN
  2. METOPROLOL. [Suspect]
     Active Substance: METOPROLOL

REACTIONS (1)
  - Drug hypersensitivity [Unknown]
